FAERS Safety Report 11379771 (Version 2)
Quarter: 2015Q3

REPORT INFORMATION
  Report Type: Report from Study
  Country: ES (occurrence: ES)
  Receive Date: 20150814
  Receipt Date: 20150820
  Transmission Date: 20151125
  Serious: Yes (Hospitalization)
  Sender: FDA-Public Use
  Company Number: ES-ASTRAZENECA-2015SE59565

PATIENT
  Age: 74 Year
  Sex: Male
  Weight: 107 kg

DRUGS (5)
  1. BYDUREON [Suspect]
     Active Substance: EXENATIDE
     Indication: TYPE 2 DIABETES MELLITUS
     Dosage: 1 INJECTION / WEEK; ONCE A WEEK
     Route: 058
     Dates: start: 201505
  2. BYDUREON [Suspect]
     Active Substance: EXENATIDE
     Indication: DIABETES MELLITUS
     Dosage: 1 INJECTION / WEEK; ONCE A WEEK
     Route: 058
     Dates: start: 201506, end: 201506
  3. LANTUS [Concomitant]
     Active Substance: INSULIN GLARGINE
     Indication: DIABETES MELLITUS
     Dosage: AS PRESCRIBED
     Route: 058
  4. BYDUREON [Suspect]
     Active Substance: EXENATIDE
     Indication: TYPE 2 DIABETES MELLITUS
     Dosage: 1 INJECTION / WEEK; ONCE A WEEK
     Route: 058
     Dates: start: 201506, end: 201506
  5. BYDUREON [Suspect]
     Active Substance: EXENATIDE
     Indication: DIABETES MELLITUS
     Dosage: 1 INJECTION / WEEK; ONCE A WEEK
     Route: 058
     Dates: start: 201505

REACTIONS (4)
  - Intestinal obstruction [Unknown]
  - Intentional product misuse [Unknown]
  - Hypoglycaemia [Recovered/Resolved]
  - Off label use [Not Recovered/Not Resolved]

NARRATIVE: CASE EVENT DATE: 201506
